FAERS Safety Report 12950319 (Version 1)
Quarter: 2016Q4

REPORT INFORMATION
  Report Type: Spontaneous
  Country: ES (occurrence: ES)
  Receive Date: 20161116
  Receipt Date: 20161116
  Transmission Date: 20170207
  Serious: Yes (Hospitalization)
  Sender: FDA-Public Use
  Company Number: ES-ASTRAZENECA-2016SF18395

PATIENT
  Age: 51 Year
  Sex: Male

DRUGS (2)
  1. OMEPRAZOLE. [Suspect]
     Active Substance: OMEPRAZOLE
     Route: 048
  2. VALSARTAN/HYDROCHLOROTHIAZIDE [Suspect]
     Active Substance: HYDROCHLOROTHIAZIDE\VALSARTAN
     Route: 065

REACTIONS (4)
  - Right hemisphere deficit syndrome [Recovered/Resolved]
  - Hypomagnesaemia [Recovered/Resolved]
  - Cerebral vasoconstriction [Recovered/Resolved]
  - Wernicke^s encephalopathy [Recovered/Resolved]
